FAERS Safety Report 13781011 (Version 1)
Quarter: 2017Q3

REPORT INFORMATION
  Report Type: Spontaneous
  Country: US (occurrence: US)
  Receive Date: 20170721
  Receipt Date: 20170721
  Transmission Date: 20171127
  Serious: No
  Sender: FDA-Public Use
  Company Number: None

PATIENT
  Age: 38 Year
  Sex: Female
  Weight: 66.28 kg

DRUGS (1)
  1. KENOLOG [Suspect]
     Active Substance: TRIAMCINOLONE ACETONIDE
     Indication: URTICARIA
     Dosage: 1 INJECTION ONLY INITIAL INJECTION NEEDED INJECTED INTO RIGHT GLUTEAL AREA?
     Dates: start: 20161211, end: 20161211

REACTIONS (1)
  - Muscle atrophy [None]

NARRATIVE: CASE EVENT DATE: 20161211
